FAERS Safety Report 11689698 (Version 1)
Quarter: 2015Q4

REPORT INFORMATION
  Report Type: Spontaneous
  Country: US (occurrence: None)
  Receive Date: 20151030
  Receipt Date: 20151030
  Transmission Date: 20160304
  Serious: Yes (Life-Threatening, Hospitalization)
  Sender: FDA-Public Use
  Company Number: None

PATIENT
  Age: 6 Year
  Sex: Male
  Weight: 24.95 kg

DRUGS (3)
  1. AUVI-Q [Suspect]
     Active Substance: EPINEPHRINE
  2. EPIPEN JR [Concomitant]
     Active Substance: EPINEPHRINE
  3. GENERIC KEPPRA SPACER WITH ALBUTEROL [Concomitant]

REACTIONS (5)
  - Lethargy [None]
  - Somnolence [None]
  - Pallor [None]
  - Syncope [None]
  - Incorrect dose administered by device [None]

NARRATIVE: CASE EVENT DATE: 20150820
